FAERS Safety Report 4763734-5 (Version None)
Quarter: 2005Q3

REPORT INFORMATION
  Report Type: 
  Country: None (occurrence: None)
  Receive Date: 20050908
  Receipt Date: 20050830
  Transmission Date: 20060218
  Serious: Yes (Death)
  Sender: FDA-Public Use
  Company Number: GB-ROCHE-415797

PATIENT
  Age: 15 Year
  Sex: Male

DRUGS (3)
  1. MYCOPHENOLATE MOFETIL [Suspect]
     Route: 065
  2. PROGRAF [Suspect]
     Route: 065
  3. PREDNISOLONE [Suspect]
     Route: 065

REACTIONS (7)
  - ABDOMINAL PAIN [None]
  - AUTOIMMUNE HEPATITIS [None]
  - BRONCHOPULMONARY ASPERGILLOSIS [None]
  - HAEMOPTYSIS [None]
  - HYDROPNEUMOTHORAX [None]
  - JAUNDICE [None]
  - RESPIRATORY FAILURE [None]
